FAERS Safety Report 7776825-1 (Version None)
Quarter: 2011Q3

REPORT INFORMATION
  Report Type: 
  Country: None (occurrence: None)
  Receive Date: 20110926
  Receipt Date: 20110909
  Transmission Date: 20111222
  Serious: No
  Sender: FDA-Public Use
  Company Number: US-B.I. PHARMACEUTICALS,INC./RIDGEFIELD-2011-BP-21959BP

PATIENT
  Sex: Female

DRUGS (8)
  1. DILTIAZEM [Concomitant]
     Indication: HYPERTENSION
  2. LORTAB [Concomitant]
     Indication: BACK PAIN
  3. ZANTAC [Concomitant]
     Indication: GASTROOESOPHAGEAL REFLUX DISEASE
  4. DIAZEPAM [Concomitant]
     Indication: ANXIETY
  5. METHADONE HCL [Concomitant]
     Indication: BACK PAIN
  6. K+ (POTASSIUM) [Concomitant]
     Indication: ELECTROLYTE SUBSTITUTION THERAPY
  7. SPIRIVA [Suspect]
     Indication: CHRONIC OBSTRUCTIVE PULMONARY DISEASE
     Dosage: 18 MCG
     Route: 055
     Dates: start: 20070101, end: 20110301
  8. TIGAN [Concomitant]
     Indication: NAUSEA

REACTIONS (1)
  - DYSPNOEA [None]
